FAERS Safety Report 21691942 (Version 2)
Quarter: 2022Q4

REPORT INFORMATION
  Report Type: Spontaneous
  Country: JP (occurrence: JP)
  Receive Date: 20221207
  Receipt Date: 20221223
  Transmission Date: 20230112
  Serious: Yes (Hospitalization, Other)
  Sender: FDA-Public Use
  Company Number: JP-GEHPL-2022JSU008574AA

PATIENT
  Age: 69 Year
  Sex: Female
  Weight: 37.8 kg

DRUGS (13)
  1. OMNIPAQUE [Suspect]
     Active Substance: IOHEXOL
     Indication: Angiogram
     Dosage: 100 ML, SINGLE
     Route: 042
     Dates: start: 20160301, end: 20160301
  2. OMNIPAQUE [Suspect]
     Active Substance: IOHEXOL
     Indication: Peripheral arterial occlusive disease
  3. LANSOPRAZOLE [Concomitant]
     Active Substance: LANSOPRAZOLE
     Dosage: 15 MG
  4. METHYLCOBALAMIN [Concomitant]
     Active Substance: METHYLCOBALAMIN
     Dosage: 0.5 MG
  5. CELECOXIB [Concomitant]
     Active Substance: CELECOXIB
     Dosage: 100 MG
  6. CILOSTAZOL [Concomitant]
     Active Substance: CILOSTAZOL
     Dosage: 50 MG
  7. CINACALCET HYDROCHLORIDE [Concomitant]
     Active Substance: CINACALCET HYDROCHLORIDE
     Dosage: 12.5 MG
  8. ALFACALCIDOL [Concomitant]
     Active Substance: ALFACALCIDOL
     Dosage: 0.25 ?G
  9. WARFARIN [Concomitant]
     Active Substance: WARFARIN
     Dosage: 1 MG
  10. BROTIZOLAM [Concomitant]
     Active Substance: BROTIZOLAM
     Dosage: 0.25 MG
  11. SENNOSIDES [Concomitant]
     Active Substance: SENNOSIDES
     Dosage: 12 MG
  12. FERRIC CITRATE ANHYDROUS [Concomitant]
     Active Substance: FERRIC CITRATE ANHYDROUS
     Dosage: 250 MG
  13. TRAMCET [Concomitant]
     Active Substance: ACETAMINOPHEN\TRAMADOL
     Dosage: UNK

REACTIONS (5)
  - Kounis syndrome [Recovered/Resolved]
  - Anaphylactic shock [Recovered/Resolved]
  - Cardio-respiratory arrest [Recovered/Resolved]
  - Arterial injury [Recovered/Resolved]
  - Rib fracture [Not Recovered/Not Resolved]

NARRATIVE: CASE EVENT DATE: 20160301
